FAERS Safety Report 6750636-8 (Version None)
Quarter: 2010Q2

REPORT INFORMATION
  Report Type: 
  Country: None (occurrence: None)
  Receive Date: 20100602
  Receipt Date: 20100525
  Transmission Date: 20101027
  Serious: Yes (Hospitalization)
  Sender: FDA-Public Use
  Company Number: US-BIOGENIDEC-2009BI022213

PATIENT
  Age: 57 Year
  Sex: Female

DRUGS (17)
  1. TYSABRI [Suspect]
     Indication: MULTIPLE SCLEROSIS
     Route: 042
     Dates: start: 20071121, end: 20091028
  2. TYSABRI [Suspect]
     Route: 042
     Dates: start: 20100324
  3. NEURONTIN [Concomitant]
     Route: 048
  4. TEGRETOL [Concomitant]
     Route: 048
  5. WELLBUTRIN XL [Concomitant]
     Route: 048
  6. VALIUM [Concomitant]
     Route: 048
  7. MIDRIN [Concomitant]
     Indication: HEADACHE
  8. PAXIL [Concomitant]
     Route: 048
  9. NITROFURANTOIN [Concomitant]
     Route: 048
  10. R-TANNATE [Concomitant]
  11. LOVASTATIN [Concomitant]
     Route: 048
  12. LOVASTATIN [Concomitant]
     Route: 048
  13. VITAMIN D [Concomitant]
  14. AMBIEN [Concomitant]
     Indication: SLEEP DISORDER
  15. PANTOPRAZOLE [Concomitant]
     Route: 048
  16. LUNESTA [Concomitant]
     Route: 048
  17. CALTRATE D [Concomitant]
     Route: 048

REACTIONS (14)
  - ACUTE MYOCARDIAL INFARCTION [None]
  - BLOOD CALCIUM DECREASED [None]
  - BREAST ENLARGEMENT [None]
  - CONTUSION [None]
  - DIARRHOEA [None]
  - EXOSTOSIS [None]
  - FALL [None]
  - FATIGUE [None]
  - HUMERUS FRACTURE [None]
  - MAMMOGRAM ABNORMAL [None]
  - MUSCULOSKELETAL PAIN [None]
  - SKELETAL INJURY [None]
  - VITAMIN D DECREASED [None]
  - WEIGHT INCREASED [None]
